FAERS Safety Report 19031566 (Version 1)
Quarter: 2021Q1

REPORT INFORMATION
  Report Type: Spontaneous
  Country: US (occurrence: US)
  Receive Date: 20210319
  Receipt Date: 20210319
  Transmission Date: 20210420
  Serious: Yes (Other)
  Sender: FDA-Public Use
  Company Number: None

PATIENT
  Age: 59 Year
  Weight: 101.25 kg

DRUGS (1)
  1. GAMMAPLEX [Suspect]
     Active Substance: HUMAN IMMUNOGLOBULIN G
     Indication: DEMYELINATING POLYNEUROPATHY
     Dosage: ?          OTHER FREQUENCY:80GM QD X 2 Q3WKS;?
     Route: 042
     Dates: start: 20190327

REACTIONS (3)
  - Pruritus [None]
  - Swollen tongue [None]
  - Rash [None]

NARRATIVE: CASE EVENT DATE: 20210311
